FAERS Safety Report 6504350-4 (Version None)
Quarter: 2009Q4

REPORT INFORMATION
  Report Type: 
  Country: None (occurrence: None)
  Receive Date: 20091217
  Receipt Date: 20091207
  Transmission Date: 20100525
  Serious: Yes (Hospitalization)
  Sender: FDA-Public Use
  Company Number: AR-ELI_LILLY_AND_COMPANY-AR200912002263

PATIENT
  Age: 79 Year
  Sex: Female

DRUGS (5)
  1. HUMULIN N [Suspect]
     Dosage: UNK, UNKNOWN
     Route: 065
  2. DILATREND [Concomitant]
     Dosage: UNK, UNKNOWN
     Route: 065
  3. ARTERIOSAN [Concomitant]
     Dosage: UNK, UNKNOWN
     Route: 065
  4. PANTOPRAZOL [Concomitant]
     Dosage: UNK, UNKNOWN
     Route: 065
  5. ALDACTONE [Concomitant]
     Dosage: UNK, UNKNOWN
     Route: 065

REACTIONS (3)
  - HYPERSENSITIVITY [None]
  - PIGMENTATION DISORDER [None]
  - SKIN IRRITATION [None]
